FAERS Safety Report 9228222 (Version 2)
Quarter: 2013Q2

REPORT INFORMATION
  Report Type: Report from Study
  Country: TR (occurrence: TR)
  Receive Date: 20130412
  Receipt Date: 20130527
  Transmission Date: 20140414
  Serious: Yes (Other)
  Sender: FDA-Public Use
  Company Number: TR-ROCHE-1209448

PATIENT
  Age: 71 Year
  Sex: Male

DRUGS (2)
  1. ALTEPLASE [Suspect]
     Indication: VITREOUS FIBRIN
     Route: 042
  2. POVIDONE IODINE [Concomitant]
     Route: 065

REACTIONS (2)
  - Intraocular pressure increased [Recovered/Resolved]
  - Pain [Recovered/Resolved]
